FAERS Safety Report 14243863 (Version 1)
Quarter: 2017Q4

REPORT INFORMATION
  Report Type: Spontaneous
  Country: CN (occurrence: CN)
  Receive Date: 20171201
  Receipt Date: 20171201
  Transmission Date: 20180321
  Serious: Yes (Life-Threatening)
  Sender: FDA-Public Use
  Company Number: CN-PFIZER INC-2017514312

PATIENT
  Age: 64 Year
  Sex: Female
  Weight: 41 kg

DRUGS (3)
  1. JIE NING (TRANEXAMIC ACID) [Suspect]
     Active Substance: TRANEXAMIC ACID
     Indication: HAEMOSTASIS
     Dosage: 100 ML, 2X/DAY
     Route: 041
     Dates: start: 20171001, end: 20171004
  2. GLUCOSE INJECTION [Concomitant]
     Active Substance: DEXTROSE
     Indication: VEHICLE SOLUTION USE
     Dosage: 250 ML, 1X/DAY
     Route: 041
     Dates: start: 20171001, end: 20171003
  3. SOLU-MEDROL [Suspect]
     Active Substance: METHYLPREDNISOLONE SODIUM SUCCINATE
     Indication: PLATELET COUNT DECREASED
     Dosage: 1000 MG, 1X/DAY
     Route: 041
     Dates: start: 20171001, end: 20171003

REACTIONS (5)
  - Gaze palsy [Recovered/Resolved]
  - Deafness [Recovered/Resolved]
  - Hypoacusis [Recovered/Resolved]
  - Dyskinesia [Recovered/Resolved]
  - Epilepsy [Recovered/Resolved]

NARRATIVE: CASE EVENT DATE: 20171003
